FAERS Safety Report 14655063 (Version 1)
Quarter: 2018Q1

REPORT INFORMATION
  Report Type: Spontaneous
  Country: BR (occurrence: BR)
  Receive Date: 20180319
  Receipt Date: 20180319
  Transmission Date: 20180509
  Serious: Yes (Hospitalization)
  Sender: FDA-Public Use
  Company Number: BR-SA-2018SA048027

PATIENT
  Sex: Female
  Weight: 64 kg

DRUGS (1)
  1. CLEXANE [Suspect]
     Active Substance: ENOXAPARIN SODIUM
     Indication: THROMBOSIS
     Route: 051
     Dates: start: 20180128

REACTIONS (3)
  - Hospitalisation [Unknown]
  - Exposure during pregnancy [Unknown]
  - Fall [Unknown]
